FAERS Safety Report 11069186 (Version 3)
Quarter: 2015Q2

REPORT INFORMATION
  Report Type: Report from Study
  Country: DE (occurrence: DE)
  Receive Date: 20150427
  Receipt Date: 20150525
  Transmission Date: 20150821
  Serious: Yes (Death, Hospitalization, Other)
  Sender: FDA-Public Use
  Company Number: PHHY2015DE048226

PATIENT
  Age: 73 Year
  Sex: Male
  Weight: 66 kg

DRUGS (1)
  1. LDK378 [Suspect]
     Active Substance: CERITINIB
     Indication: NON-SMALL CELL LUNG CANCER
     Dosage: 150 MG, (0-0-3)
     Route: 048
     Dates: start: 20141001, end: 20141216

REACTIONS (6)
  - General physical health deterioration [Unknown]
  - Malignant neoplasm progression [Unknown]
  - Death [Fatal]
  - C-reactive protein increased [Unknown]
  - Non-small cell lung cancer [Unknown]
  - Pneumonia [Unknown]

NARRATIVE: CASE EVENT DATE: 20150115
